FAERS Safety Report 11777109 (Version 1)
Quarter: 2015Q4

REPORT INFORMATION
  Report Type: Spontaneous
  Country: US (occurrence: None)
  Receive Date: 20151124
  Receipt Date: 20151124
  Transmission Date: 20160304
  Serious: Yes (Disabling)
  Sender: FDA-Public Use
  Company Number: None

PATIENT
  Age: 63 Year
  Sex: Male
  Weight: 86.18 kg

DRUGS (16)
  1. CARVEDILOL. [Concomitant]
     Active Substance: CARVEDILOL
  2. FUROSEMIDE (LASEX) [Concomitant]
  3. TYLENOL-CODEINE #3 [Concomitant]
  4. LISINOPRIL (ACE INHIBITOR) [Concomitant]
  5. FOLIC ACID. [Concomitant]
     Active Substance: FOLIC ACID
  6. PANTOPRAZOLE [Concomitant]
     Active Substance: PANTOPRAZOLE SODIUM
  7. 81MG MULTI VITAMIN (CENTRUM SILVER) [Concomitant]
  8. CENTRUM SILVER [Concomitant]
     Active Substance: MINERALS\VITAMINS
  9. ASPIRIN. [Concomitant]
     Active Substance: ASPIRIN
  10. HYDROMORPHONE (DELADID) [Concomitant]
  11. DIGOXIN. [Concomitant]
     Active Substance: DIGOXIN
  12. LEVOFLOXACIN 500MG ZYDUS [Suspect]
     Active Substance: LEVOFLOXACIN
     Indication: INFECTION
     Route: 048
  13. DIAZEPAM. [Concomitant]
     Active Substance: DIAZEPAM
  14. FIBER - BENEFIBER [Concomitant]
  15. LEVOTHYROXINE. [Concomitant]
     Active Substance: LEVOTHYROXINE
  16. METHOTREXATE [Concomitant]
     Active Substance: METHOTREXATE

REACTIONS (3)
  - Pain in extremity [None]
  - Muscle spasms [None]
  - Tendon disorder [None]

NARRATIVE: CASE EVENT DATE: 20121101
